FAERS Safety Report 4882374-0 (Version None)
Quarter: 2005Q4

REPORT INFORMATION
  Report Type: 
  Country: None (occurrence: None)
  Receive Date: 20051201
  Receipt Date: 20050726
  Transmission Date: 20060501
  Serious: No
  Sender: FDA-Public Use
  Company Number: 2005PV000604

PATIENT
  Age: 70 Year
  Sex: Female
  Weight: 85.2762 kg

DRUGS (6)
  1. BYETTA [Suspect]
     Indication: DIABETES MELLITUS NON-INSULIN-DEPENDENT
     Dosage: 5 MCG;BID;SC
     Route: 058
     Dates: start: 20050722
  2. FORTAMET [Concomitant]
  3. GLYBURIDE [Concomitant]
  4. AVAPRO [Concomitant]
  5. ZETIA [Concomitant]
  6. VITAMIN NOS [Concomitant]

REACTIONS (5)
  - ASTHENIA [None]
  - FEELING JITTERY [None]
  - INSOMNIA [None]
  - MALAISE [None]
  - SOMNOLENCE [None]
